FAERS Safety Report 10538280 (Version 1)
Quarter: 2014Q4

REPORT INFORMATION
  Report Type: Spontaneous
  Country: IT (occurrence: IT)
  Receive Date: 20141023
  Receipt Date: 20141023
  Transmission Date: 20150529
  Serious: Yes (Other)
  Sender: FDA-Public Use
  Company Number: PHHY2014IT136823

PATIENT
  Age: 58 Year
  Sex: Male

DRUGS (3)
  1. RIBAVIRIN. [Suspect]
     Active Substance: RIBAVIRIN
     Indication: HEPATITIS C
     Dosage: 1000 MG, QD
     Route: 065
     Dates: start: 201009, end: 201012
  2. PEGINTERFERON ALFA-2B [Suspect]
     Active Substance: PEGINTERFERON ALFA-2B
     Indication: HEPATITIS C
     Dosage: 1.5 UG/KG, QD
     Route: 065
  3. PEGINTERFERON ALFA-2B [Suspect]
     Active Substance: PEGINTERFERON ALFA-2B
     Dosage: 180 UG, QD
     Route: 065
     Dates: start: 201009, end: 201012

REACTIONS (4)
  - Glomerulonephritis membranoproliferative [Recovered/Resolved]
  - Proteinuria [Recovered/Resolved]
  - Nephrosclerosis [Recovered/Resolved]
  - Haematuria [Recovered/Resolved]
